FAERS Safety Report 6823042-5 (Version None)
Quarter: 2010Q3

REPORT INFORMATION
  Report Type: 
  Country: None (occurrence: None)
  Receive Date: 20100708
  Receipt Date: 20100705
  Transmission Date: 20110219
  Serious: Yes (Hospitalization)
  Sender: FDA-Public Use
  Company Number: B0661009A

PATIENT
  Age: 83 Year
  Sex: Female

DRUGS (6)
  1. ARIXTRA [Suspect]
     Indication: DEEP VEIN THROMBOSIS
     Dosage: 7.5MG PER DAY
     Route: 058
     Dates: end: 20100421
  2. COUMADIN [Suspect]
     Indication: DEEP VEIN THROMBOSIS
     Dosage: 2MG UNKNOWN
     Route: 048
     Dates: start: 20100329, end: 20100401
  3. LASIX [Concomitant]
     Route: 065
     Dates: start: 20100329
  4. DOMPERIDONE [Concomitant]
     Route: 065
     Dates: start: 20100329
  5. BACTRIM [Concomitant]
     Route: 065
     Dates: start: 20100329
  6. DOLITABS [Concomitant]
     Route: 065
     Dates: start: 20100329

REACTIONS (3)
  - ANAEMIA [None]
  - ASTHENIA [None]
  - HAEMATOMA [None]
